FAERS Safety Report 5684124-7 (Version None)
Quarter: 2008Q1

REPORT INFORMATION
  Report Type: 
  Country: None (occurrence: None)
  Receive Date: 20080328
  Receipt Date: 20070618
  Transmission Date: 20080703
  Serious: No
  Sender: FDA-Public Use
  Company Number: US-AMGEN-US212024

PATIENT
  Sex: Female

DRUGS (3)
  1. NEULASTA [Suspect]
     Indication: CHEMOTHERAPY
     Route: 065
     Dates: start: 20070216
  2. CARBOPLATIN [Concomitant]
     Route: 065
  3. TAXOL [Concomitant]
     Route: 065

REACTIONS (3)
  - BONE PAIN [None]
  - GAIT DISTURBANCE [None]
  - MYALGIA [None]
